FAERS Safety Report 5339900-7 (Version None)
Quarter: 2007Q2

REPORT INFORMATION
  Report Type: 
  Country: None (occurrence: None)
  Receive Date: 20070529
  Receipt Date: 20070522
  Transmission Date: 20071010
  Serious: Yes (Death, Life-Threatening, Hospitalization, Disabling)
  Sender: FDA-Public Use
  Company Number: 200705AGG00637

PATIENT
  Age: 75 Year
  Sex: Female

DRUGS (1)
  1. AGGRASTAT [Suspect]
     Dosage: INTRAVENOUS (NOT OTHERWISE SPECIFIED)
     Route: 042
     Dates: start: 20070502, end: 20070502

REACTIONS (1)
  - CARDIAC ARREST [None]
